FAERS Safety Report 19974890 (Version 1)
Quarter: 2021Q4

REPORT INFORMATION
  Report Type: Spontaneous
  Country: US (occurrence: US)
  Receive Date: 20211020
  Receipt Date: 20211020
  Transmission Date: 20220303
  Serious: No
  Sender: FDA-Public Use
  Company Number: US-ALLERGAN-2038036US

PATIENT
  Age: 68 Year
  Sex: Female
  Weight: 126.1 kg

DRUGS (20)
  1. LINZESS [Suspect]
     Active Substance: LINACLOTIDE
     Indication: Constipation
     Dosage: 72 ?G, QOD
  2. KORLYM [Suspect]
     Active Substance: MIFEPRISTONE
     Indication: Pituitary-dependent Cushing^s syndrome
     Dosage: 900 MG, QD
     Route: 048
     Dates: start: 20190207
  3. KORLYM [Suspect]
     Active Substance: MIFEPRISTONE
     Dosage: 600 MG, QD
     Route: 048
     Dates: start: 20180427
  4. KORLYM [Suspect]
     Active Substance: MIFEPRISTONE
     Dosage: 300 MG, QD
     Route: 048
     Dates: start: 20171202, end: 20180426
  5. SPIRONOLACTONE [Concomitant]
     Active Substance: SPIRONOLACTONE
  6. CHLORTHALIDONE [Concomitant]
     Active Substance: CHLORTHALIDONE
  7. ENALAPRIL [Concomitant]
     Active Substance: ENALAPRIL
  8. OMEPRAZOLE [Concomitant]
     Active Substance: OMEPRAZOLE
  9. FAMOTIDINE [Concomitant]
     Active Substance: FAMOTIDINE
  10. FLUOXETINE [Concomitant]
     Active Substance: FLUOXETINE HYDROCHLORIDE
  11. AMLODIPINE [Concomitant]
     Active Substance: AMLODIPINE BESYLATE
  12. MONTELUKAST [Concomitant]
     Active Substance: MONTELUKAST SODIUM
  13. SYMBICORT [Concomitant]
     Active Substance: BUDESONIDE\FORMOTEROL FUMARATE DIHYDRATE
  14. PROAIR HFA [Concomitant]
     Active Substance: ALBUTEROL SULFATE
  15. LUMIGAN [Concomitant]
     Active Substance: BIMATOPROST
  16. SYNTHROID [Concomitant]
     Active Substance: LEVOTHYROXINE SODIUM
  17. CYANOCOBALAMIN [Concomitant]
     Active Substance: CYANOCOBALAMIN
  18. VITAMIN D NOS [Concomitant]
     Active Substance: VITAMIN D NOS
  19. PROBIOTICS NOS [Concomitant]
     Active Substance: PROBIOTICS NOS
  20. PRAZOSIN [Concomitant]
     Active Substance: PRAZOSIN

REACTIONS (3)
  - Inappropriate schedule of product administration [Unknown]
  - Back pain [Recovering/Resolving]
  - Diarrhoea [Unknown]

NARRATIVE: CASE EVENT DATE: 20200813
